FAERS Safety Report 6544442-7 (Version None)
Quarter: 2010Q1

REPORT INFORMATION
  Report Type: 
  Country: None (occurrence: None)
  Receive Date: 20100120
  Receipt Date: 20100120
  Transmission Date: 20100710
  Serious: Yes (Other)
  Sender: FDA-Public Use
  Company Number: None

PATIENT
  Age: 51 Year
  Sex: Male
  Weight: 58.9676 kg

DRUGS (4)
  1. LINDANE [Suspect]
     Indication: ACARODERMATITIS
     Dosage: DAILY, 047
     Dates: start: 20091001, end: 20091101
  2. DILTIAZEM [Concomitant]
  3. NOVOLOG [Concomitant]
  4. MAXZIDE [Concomitant]

REACTIONS (10)
  - ABDOMINAL PAIN [None]
  - COMPUTERISED TOMOGRAM ABNORMAL [None]
  - HEADACHE [None]
  - HEPATIC ENZYME INCREASED [None]
  - HEPATOTOXICITY [None]
  - MUSCLE SPASMS [None]
  - NAUSEA [None]
  - RASH [None]
  - ULTRASOUND ABDOMEN ABNORMAL [None]
  - WRONG TECHNIQUE IN DRUG USAGE PROCESS [None]
